FAERS Safety Report 8337555-0 (Version None)
Quarter: 2012Q2

REPORT INFORMATION
  Report Type: 
  Country: None (occurrence: None)
  Receive Date: 20120504
  Receipt Date: 20120501
  Transmission Date: 20120825
  Serious: No
  Sender: FDA-Public Use
  Company Number: US-PFIZER INC-2012107797

PATIENT
  Sex: Female
  Weight: 62.132 kg

DRUGS (5)
  1. TOVIAZ [Suspect]
     Dosage: 8 MG, DAILY
  2. METOPROLOL TARTRATE [Concomitant]
     Indication: CARDIAC DISORDER
     Dosage: 25 MG, 2X/DAY
  3. TOVIAZ [Suspect]
     Indication: INCONTINENCE
     Dosage: 4 MG, 1X/DAY
     Dates: start: 20110101
  4. EVISTA [Concomitant]
     Indication: HORMONE THERAPY
     Dosage: 60 MG, 1X/DAY
  5. DONEPEZIL [Concomitant]
     Indication: HYPERTENSION
     Dosage: 180 MG, 2X/DAY

REACTIONS (2)
  - ABDOMINAL DISCOMFORT [None]
  - DRY MOUTH [None]
